FAERS Safety Report 5615026-X (Version None)
Quarter: 2008Q1

REPORT INFORMATION
  Report Type: 
  Country: None (occurrence: None)
  Receive Date: 20080201
  Receipt Date: 20080121
  Transmission Date: 20080703
  Serious: No
  Sender: FDA-Public Use
  Company Number: 2008-170914-NL

PATIENT
  Sex: Female

DRUGS (1)
  1. ETONOGESTREL [Suspect]
     Dosage: DF

REACTIONS (1)
  - NEOPLASM MALIGNANT [None]
